FAERS Safety Report 7325902-8 (Version None)
Quarter: 2011Q1

REPORT INFORMATION
  Report Type: 
  Country: None (occurrence: None)
  Receive Date: 20110216
  Receipt Date: 20110207
  Transmission Date: 20110831
  Serious: Yes (Other)
  Sender: FDA-Public Use
  Company Number: DSA_44937_2011

PATIENT
  Age: 43 Year
  Sex: Male

DRUGS (4)
  1. LAMICTAL [Concomitant]
  2. BUPROPION HCL [Suspect]
     Indication: ATTENTION DEFICIT/HYPERACTIVITY DISORDER
     Dosage: (300 MG DAILY) ; (150 MG DAILY)
     Dates: start: 20100101, end: 20100101
  3. BUPROPION HCL [Suspect]
     Indication: ATTENTION DEFICIT/HYPERACTIVITY DISORDER
     Dosage: (300 MG DAILY) ; (150 MG DAILY)
     Dates: start: 20100101
  4. MIRTAZAPINE [Concomitant]

REACTIONS (2)
  - OFF LABEL USE [None]
  - DENTAL CARIES [None]
